FAERS Safety Report 23722399 (Version 1)
Quarter: 2024Q2

REPORT INFORMATION
  Report Type: Other
  Country: AU (occurrence: AU)
  Receive Date: 20240409
  Receipt Date: 20240409
  Transmission Date: 20240716
  Serious: Yes (Hospitalization)
  Sender: FDA-Public Use
  Company Number: AU-BoehringerIngelheim-2024-BI-019485

PATIENT
  Age: 40 Year
  Sex: Male

DRUGS (4)
  1. METALYSE [Suspect]
     Active Substance: TENECTEPLASE
     Indication: Acute myocardial infarction
     Route: 065
  2. HEPARIN [Concomitant]
     Active Substance: HEPARIN SODIUM
     Indication: Product used for unknown indication
     Dosage: INTRAVENOUS BOLUS HEPARIN 5000 UNITS FOLLOWED BY CONTINUOUS HEPARIN INFUSION (25000 UNITS)
     Route: 042
  3. HEPARIN [Concomitant]
     Active Substance: HEPARIN SODIUM
     Dosage: 2500 UNITS DURING CAG
  4. TICAGRELOR [Concomitant]
     Active Substance: TICAGRELOR
     Indication: Product used for unknown indication
     Dosage: 180 MG; PRIOR TO TRANSFER

REACTIONS (4)
  - Spinal epidural haematoma [Recovering/Resolving]
  - Pseudostroke [Recovering/Resolving]
  - Cervical cord compression [Unknown]
  - Face injury [Unknown]
